FAERS Safety Report 23307445 (Version 1)
Quarter: 2023Q4

REPORT INFORMATION
  Report Type: Report from Study
  Country: US (occurrence: US)
  Receive Date: 20231218
  Receipt Date: 20231218
  Transmission Date: 20240109
  Serious: No
  Sender: FDA-Public Use
  Company Number: US-ALXN-A202312816

PATIENT
  Sex: Female

DRUGS (1)
  1. STRENSIQ [Suspect]
     Active Substance: ASFOTASE ALFA
     Indication: Hypophosphatasia
     Dosage: UNK
     Route: 065

REACTIONS (19)
  - Nasopharyngitis [Unknown]
  - Malaise [Not Recovered/Not Resolved]
  - Lethargy [Unknown]
  - Cough [Unknown]
  - Lymphadenopathy [Unknown]
  - Palpitations [Recovering/Resolving]
  - Urine abnormality [Unknown]
  - Asthenia [Recovering/Resolving]
  - Brain fog [Recovering/Resolving]
  - Somnolence [Unknown]
  - Hypoaesthesia [Unknown]
  - Temporomandibular joint syndrome [Unknown]
  - Drug ineffective [Unknown]
  - Autonomic nervous system imbalance [Unknown]
  - Raynaud^s phenomenon [Unknown]
  - Balance disorder [Unknown]
  - Headache [Recovering/Resolving]
  - Pyrexia [Unknown]
  - Ehlers-Danlos syndrome [Unknown]
